FAERS Safety Report 7037180-8 (Version None)
Quarter: 2010Q4

REPORT INFORMATION
  Report Type: 
  Country: None (occurrence: None)
  Receive Date: 20101011
  Receipt Date: 20100928
  Transmission Date: 20110411
  Serious: Yes (Hospitalization)
  Sender: FDA-Public Use
  Company Number: US-ELI_LILLY_AND_COMPANY-US200912005332

PATIENT
  Sex: Female

DRUGS (10)
  1. FORTEO [Suspect]
     Indication: OSTEOPOROSIS
     Dosage: 20 UG, DAILY (1/D)
     Dates: start: 20090925
  2. FORTEO [Suspect]
     Dosage: 20 UG, DAILY (1/D)
     Dates: start: 20091201
  3. METHOTREXATE [Concomitant]
     Dosage: UNK, WEEKLY (1/W)
  4. PREDNISONE/00044701/ [Concomitant]
     Dosage: 5 MG, DAILY (1/D)
  5. CELEBREX [Concomitant]
     Dosage: UNK, DAILY (1/D)
  6. VITAMIN D [Concomitant]
     Dosage: UNK, WEEKLY (1/W)
  7. TYLENOL W/ CODEINE NO. 4 [Concomitant]
     Indication: PAIN
  8. MISOPROSTOL [Concomitant]
  9. ASPIRIN [Concomitant]
  10. COMBIVENT [Concomitant]
     Route: 055

REACTIONS (8)
  - BACK PAIN [None]
  - CARDIAC DISORDER [None]
  - DRUG DOSE OMISSION [None]
  - DYSPNOEA [None]
  - LUNG DISORDER [None]
  - PNEUMONIA [None]
  - PULMONARY HYPERTENSION [None]
  - WEIGHT INCREASED [None]
